FAERS Safety Report 25613319 (Version 1)
Quarter: 2025Q3

REPORT INFORMATION
  Report Type: Spontaneous
  Country: US (occurrence: None)
  Receive Date: 20250727
  Receipt Date: 20250727
  Transmission Date: 20251021
  Serious: Yes (Life-Threatening, Hospitalization, Disabling, Other)
  Sender: FDA-CTU
  Company Number: None

PATIENT
  Sex: Male

DRUGS (1)
  1. NUVIGIL [Suspect]
     Active Substance: ARMODAFINIL
     Indication: Product used for unknown indication
     Dosage: OTHER STRENGTH : FRACTION OF 150 MG;?FREQUENCY : DAILY;?
     Route: 048
     Dates: start: 20150501, end: 20160801

REACTIONS (21)
  - Injury [None]
  - Psychomotor hyperactivity [None]
  - Hypophagia [None]
  - Insomnia [None]
  - Somnambulism [None]
  - Abnormal behaviour [None]
  - Decreased activity [None]
  - Exercise lack of [None]
  - Fatigue [None]
  - Alopecia [None]
  - Starvation [None]
  - Stress [None]
  - Dry skin [None]
  - Arthropod sting [None]
  - Erythema [None]
  - Osteitis [None]
  - Scar [None]
  - Acne [None]
  - Loss of consciousness [None]
  - Melanocytic naevus [None]
  - Hypersomnia [None]

NARRATIVE: CASE EVENT DATE: 20150501
